FAERS Safety Report 9363874 (Version 1)
Quarter: 2013Q2

REPORT INFORMATION
  Report Type: Spontaneous
  Country: US (occurrence: US)
  Receive Date: 20130624
  Receipt Date: 20130624
  Transmission Date: 20140414
  Serious: Yes (Other)
  Sender: FDA-Public Use
  Company Number: US-PFIZER INC-2013185220

PATIENT
  Age: 61 Year
  Sex: Female
  Weight: 101.59 kg

DRUGS (10)
  1. CELEBREX [Suspect]
     Indication: ARTHRITIS
     Dosage: 200 MG, 1X/DAY
     Route: 048
     Dates: end: 201304
  2. CELEBREX [Suspect]
     Indication: SPONDYLITIS
  3. MICARDIS [Concomitant]
     Indication: HYPERTENSION
     Dosage: UNK
  4. INDERAL [Concomitant]
     Dosage: UNK
  5. NORVASC [Concomitant]
     Indication: MUSCLE SPASMS
     Dosage: UNK
  6. CLARITIN [Concomitant]
     Dosage: UNK
  7. ASPIRIN [Concomitant]
     Dosage: 81 MG, UNK
  8. OMEPRAZOLE [Concomitant]
     Dosage: UNK
  9. ELAVIL [Concomitant]
     Indication: NEURALGIA
     Dosage: UNK
  10. BIOTIN [Concomitant]
     Dosage: UNK

REACTIONS (5)
  - Mental impairment [Unknown]
  - Back disorder [Unknown]
  - Drug ineffective [Unknown]
  - Procedural pain [Unknown]
  - Weight increased [Unknown]
